FAERS Safety Report 5980566-0 (Version None)
Quarter: 2008Q4

REPORT INFORMATION
  Report Type: 
  Country: None (occurrence: None)
  Receive Date: 20081205
  Receipt Date: 20080124
  Transmission Date: 20090506
  Serious: No
  Sender: FDA-Public Use
  Company Number: A0704994A

PATIENT
  Age: 49 Year
  Sex: Female

DRUGS (2)
  1. COMMIT [Suspect]
     Dates: start: 20080117
  2. NICODERM CQ [Suspect]

REACTIONS (10)
  - APPLICATION SITE HYPERAESTHESIA [None]
  - APPLICATION SITE IRRITATION [None]
  - DEHYDRATION [None]
  - DRY MOUTH [None]
  - HYPERSENSITIVITY [None]
  - LIP DISORDER [None]
  - MEDICATION RESIDUE [None]
  - OROPHARYNGEAL PLAQUE [None]
  - SPEECH DISORDER [None]
  - THIRST [None]
